FAERS Safety Report 24178872 (Version 1)
Quarter: 2024Q3

REPORT INFORMATION
  Report Type: Spontaneous
  Country: US (occurrence: US)
  Receive Date: 20240806
  Receipt Date: 20240806
  Transmission Date: 20241017
  Serious: Yes (Hospitalization, Other)
  Sender: JOHNSON AND JOHNSON
  Company Number: US-ViiV Healthcare Limited-US2022GSK178989

PATIENT
  Sex: Female

DRUGS (9)
  1. RILPIVIRINE [Suspect]
     Active Substance: RILPIVIRINE
     Indication: HIV infection
     Dosage: ONCE-MONTHLY
     Route: 030
     Dates: start: 2021
  2. CABOTEGRAVIR [Suspect]
     Active Substance: CABOTEGRAVIR
     Indication: HIV infection
     Route: 030
     Dates: start: 2021
  3. DOLUTEGRAVIR [Suspect]
     Active Substance: DOLUTEGRAVIR
     Indication: Perinatal HIV infection
     Dosage: UNK
     Route: 048
  4. DOLUTEGRAVIR SODIUM\RILPIVIRINE HYDROCHLORIDE [Suspect]
     Active Substance: DOLUTEGRAVIR SODIUM\RILPIVIRINE HYDROCHLORIDE
     Indication: Perinatal HIV infection
     Dosage: UNK
     Route: 048
  5. RITONAVIR [Suspect]
     Active Substance: RITONAVIR
     Indication: Perinatal HIV infection
     Dosage: UNK
     Route: 048
  6. ATAZANAVIR [Suspect]
     Active Substance: ATAZANAVIR
     Indication: Perinatal HIV infection
     Dosage: UNK
     Route: 048
  7. EMTRICITABINE\TENOFOVIR DISOPROXIL FUMARATE [Suspect]
     Active Substance: EMTRICITABINE\TENOFOVIR DISOPROXIL FUMARATE
     Indication: Perinatal HIV infection
     Dosage: UNK
     Route: 048
  8. COBICISTAT\DARUNAVIR ETHANOLATE [Suspect]
     Active Substance: COBICISTAT\DARUNAVIR ETHANOLATE
     Indication: Perinatal HIV infection
     Dosage: UNK
     Route: 048
  9. EMTRICITABINE\TENOFOVIR ALAFENAMIDE FUMARATE [Suspect]
     Active Substance: EMTRICITABINE\TENOFOVIR ALAFENAMIDE FUMARATE
     Indication: Perinatal HIV infection
     Dosage: UNK
     Route: 048

REACTIONS (11)
  - HIV viraemia [Recovering/Resolving]
  - Mycobacterium avium complex infection [Unknown]
  - Pneumonia [Unknown]
  - Hypotension [Unknown]
  - Molluscum contagiosum [Unknown]
  - Vaginal infection [Unknown]
  - Diarrhoea [Unknown]
  - Immunosuppression [Unknown]
  - Virologic failure [Recovered/Resolved]
  - Treatment noncompliance [Unknown]
  - Off label use [Unknown]
